FAERS Safety Report 5782349-3 (Version None)
Quarter: 2008Q2

REPORT INFORMATION
  Report Type: 
  Country: None (occurrence: None)
  Receive Date: 20080623
  Receipt Date: 20080616
  Transmission Date: 20081010
  Serious: Yes (Hospitalization)
  Sender: FDA-Public Use
  Company Number: US-BOEHRINGER INGELHEIM GMBH, GERMANY-2008-BP-09385BP

PATIENT
  Sex: Male

DRUGS (7)
  1. AGGRENOX [Suspect]
     Indication: CEREBROVASCULAR ACCIDENT PROPHYLAXIS
     Route: 048
  2. LISINOPRIL [Concomitant]
     Indication: HYPERTENSION
  3. ASPIRIN [Concomitant]
     Indication: CARDIAC DISORDER
  4. COREG [Concomitant]
     Indication: CARDIAC DISORDER
  5. PRILOSEC [Concomitant]
     Indication: STOMACH DISCOMFORT
  6. CYMBALTA [Concomitant]
     Indication: PAIN
  7. PRAVACHOL [Concomitant]
     Indication: BLOOD CHOLESTEROL

REACTIONS (2)
  - CEREBROVASCULAR ACCIDENT [None]
  - MYOCARDIAL INFARCTION [None]
